FAERS Safety Report 5637091-6 (Version None)
Quarter: 2008Q1

REPORT INFORMATION
  Report Type: 
  Country: None (occurrence: None)
  Receive Date: 20080225
  Receipt Date: 20070918
  Transmission Date: 20080703
  Serious: No
  Sender: FDA-Public Use
  Company Number: US-BRISTOL-MYERS SQUIBB COMPANY-13912381

PATIENT
  Age: 26 Year
  Sex: Female

DRUGS (3)
  1. METFORMIN HCL [Suspect]
  2. CLOMID [Suspect]
  3. HUMAN CHORIONIC GONADOTROPHIN [Suspect]

REACTIONS (1)
  - DRUG INEFFECTIVE [None]
